FAERS Safety Report 9199615 (Version 1)
Quarter: 2013Q1

REPORT INFORMATION
  Report Type: Spontaneous
  Country: US (occurrence: US)
  Receive Date: 20130329
  Receipt Date: 20130329
  Transmission Date: 20140127
  Serious: No
  Sender: FDA-Public Use
  Company Number: US-GLAXOSMITHKLINE-A1012479A

PATIENT
  Age: 49 Year
  Sex: Female

DRUGS (6)
  1. BENLYSTA [Suspect]
     Indication: SYSTEMIC LUPUS ERYTHEMATOSUS
     Route: 042
     Dates: start: 201110
  2. TYLENOL [Concomitant]
  3. HYDROXYCHLOROQUINE [Concomitant]
  4. NEURONTIN [Concomitant]
  5. OXCARBAZEPINE [Concomitant]
  6. DILANTIN [Concomitant]

REACTIONS (2)
  - Arthralgia [Not Recovered/Not Resolved]
  - Drug ineffective [Unknown]
